FAERS Safety Report 5663689-5 (Version None)
Quarter: 2008Q1

REPORT INFORMATION
  Report Type: 
  Country: None (occurrence: None)
  Receive Date: 20080307
  Receipt Date: 20080221
  Transmission Date: 20080703
  Serious: Yes (Hospitalization)
  Sender: FDA-Public Use
  Company Number: SE-1165376

PATIENT
  Age: 86 Year
  Sex: Female

DRUGS (7)
  1. PILOCARPINE HYDROCHLORIDE [Suspect]
     Indication: GLAUCOMA
     Route: 047
  2. SELOKENZOC(METOPROLOL SUCCINATE) [Concomitant]
  3. NORMORIX (MODURETIC) [Concomitant]
  4. ISOSORBIDMONITRAT(ISOSORBIDE MONONITRATE) [Concomitant]
  5. TRIATEC(PANADEINE CO) [Concomitant]
  6. XALATAN [Concomitant]
  7. NOVONORM(REPAGLINIDE) [Concomitant]

REACTIONS (3)
  - ANGINA PECTORIS [None]
  - ARRHYTHMIA [None]
  - SICK SINUS SYNDROME [None]
